FAERS Safety Report 10176020 (Version 3)
Quarter: 2014Q3

REPORT INFORMATION
  Report Type: Report from Study
  Country: MX (occurrence: MX)
  Receive Date: 20140516
  Receipt Date: 20140805
  Transmission Date: 20150326
  Serious: Yes (Hospitalization)
  Sender: FDA-Public Use
  Company Number: MX-ROCHE-1397849

PATIENT
  Age: 44 Year
  Sex: Female

DRUGS (24)
  1. CLOROTRIMETON [Concomitant]
     Route: 065
     Dates: start: 20140521, end: 20140523
  2. DEXAMETASONA [Concomitant]
     Active Substance: DEXAMETHASONE
     Route: 065
     Dates: start: 20140424, end: 20140424
  3. DEXAMETASONA [Concomitant]
     Active Substance: DEXAMETHASONE
     Route: 065
     Dates: start: 20140522, end: 20140522
  4. GRANISETRON [Concomitant]
     Active Substance: GRANISETRON
     Route: 065
     Dates: start: 20140424, end: 20140424
  5. CLOROTRIMETON [Concomitant]
     Route: 065
     Dates: start: 20140410, end: 20140410
  6. GRANISETRON [Concomitant]
     Active Substance: GRANISETRON
     Route: 065
     Dates: start: 20140410, end: 20140410
  7. GRANISETRON [Concomitant]
     Active Substance: GRANISETRON
     Route: 065
     Dates: start: 20140507, end: 20140507
  8. DEXAMETASONA [Concomitant]
     Active Substance: DEXAMETHASONE
     Route: 065
     Dates: start: 20140507, end: 20140507
  9. METICORTEN [Concomitant]
     Active Substance: PREDNISONE
     Route: 065
     Dates: start: 20140521, end: 20140523
  10. GRANISETRON [Concomitant]
     Active Substance: GRANISETRON
     Route: 065
     Dates: start: 20140430, end: 20140430
  11. GRANISETRON [Concomitant]
     Active Substance: GRANISETRON
     Route: 065
     Dates: start: 20140514, end: 20140514
  12. CLOROTRIMETON [Concomitant]
     Route: 065
     Dates: start: 20140430, end: 20140430
  13. CLOROTRIMETON [Concomitant]
     Route: 065
     Dates: start: 20140514, end: 20140514
  14. TRASTUZUMAB [Suspect]
     Active Substance: TRASTUZUMAB
     Indication: HER-2 POSITIVE BREAST CANCER
     Dosage: LOADING DOSE ON DAY 1 OF CYCLE 1
     Route: 042
     Dates: start: 20140410
  15. TRASTUZUMAB [Suspect]
     Active Substance: TRASTUZUMAB
     Dosage: MAINTENANCE DOSE.?ON 30/APR/2014, THE PATIENT RECEIVED MAINTENANCE DOSE (LAST DOSE PRIOR TO SAE).?AD
     Route: 042
     Dates: start: 20140430
  16. PACLITAXEL. [Suspect]
     Active Substance: PACLITAXEL
     Indication: HER-2 POSITIVE BREAST CANCER
     Dosage: ON 30/APR/2014, LAST DOSE PRIOR TO THE EVENT WAS RECEIVED
     Route: 042
     Dates: start: 20140410
  17. CLOROTRIMETON [Concomitant]
     Route: 065
     Dates: start: 20140512, end: 20140512
  18. DEXAMETASONA [Concomitant]
     Active Substance: DEXAMETHASONE
     Route: 065
     Dates: start: 20140410, end: 20140410
  19. DEXAMETASONA [Concomitant]
     Active Substance: DEXAMETHASONE
     Route: 065
     Dates: start: 20140430, end: 20140430
  20. DEXAMETASONA [Concomitant]
     Active Substance: DEXAMETHASONE
     Route: 065
     Dates: start: 20140514, end: 20140514
  21. PERTUZUMAB [Suspect]
     Active Substance: PERTUZUMAB
     Dosage: MAINTENENCE DOSE?ON 30/APR/2014, THE PATIENT RECEIVED MAINTENANCE DOSE (LAST DOSE PRIOR TO SAE)
     Route: 042
     Dates: start: 20140430
  22. CLOROTRIMETON [Concomitant]
     Route: 065
     Dates: start: 20140507, end: 20140507
  23. PERTUZUMAB [Suspect]
     Active Substance: PERTUZUMAB
     Indication: HER-2 POSITIVE BREAST CANCER
     Dosage: LOADING DOSE ON DAY 1 OF FIRST CYCLE
     Route: 042
     Dates: start: 20140410
  24. CLOROTRIMETON [Concomitant]
     Route: 065
     Dates: start: 20140424, end: 20140424

REACTIONS (1)
  - Rectal haemorrhage [Recovered/Resolved]

NARRATIVE: CASE EVENT DATE: 20140502
